FAERS Safety Report 8416283-7 (Version None)
Quarter: 2012Q2

REPORT INFORMATION
  Report Type: 
  Country: None (occurrence: None)
  Receive Date: 20120606
  Receipt Date: 20120524
  Transmission Date: 20120825
  Serious: Yes (Hospitalization, Other)
  Sender: FDA-Public Use
  Company Number: IT-ELI_LILLY_AND_COMPANY-IT201205008297

PATIENT
  Age: 15 Year
  Sex: Male

DRUGS (2)
  1. RISPERIDONE [Concomitant]
     Indication: AGGRESSION
     Dosage: 1.5 MG, UNK
  2. STRATTERA [Suspect]
     Indication: ATTENTION DEFICIT/HYPERACTIVITY DISORDER
     Dosage: 80 MG, UNK

REACTIONS (3)
  - DRUG INEFFECTIVE [None]
  - PYROMANIA [None]
  - AGGRESSION [None]
